FAERS Safety Report 24075524 (Version 1)
Quarter: 2024Q3

REPORT INFORMATION
  Report Type: Spontaneous
  Country: BR (occurrence: None)
  Receive Date: 20240710
  Receipt Date: 20240710
  Transmission Date: 20241017
  Serious: Yes (Other)
  Sender: ASTRAZENECA
  Company Number: 2024A156260

PATIENT
  Age: 37 Year
  Sex: Female

DRUGS (7)
  1. OLAPARIB [Suspect]
     Active Substance: OLAPARIB
     Indication: Breast cancer stage IV
     Route: 048
     Dates: start: 201904, end: 201908
  2. DOCETAXEL [Concomitant]
     Active Substance: DOCETAXEL\DOCETAXEL ANHYDROUS
  3. DOXORUBICIN [Concomitant]
     Active Substance: DOXORUBICIN
  4. CYCLOPHOSPHAMIDE [Concomitant]
     Active Substance: CYCLOPHOSPHAMIDE
  5. TAMOXIFEN [Concomitant]
     Active Substance: TAMOXIFEN
  6. CARBOPLATIN [Concomitant]
     Active Substance: CARBOPLATIN
  7. PACLITAXEL [Concomitant]
     Active Substance: PACLITAXEL

REACTIONS (4)
  - Malignant neoplasm progression [Unknown]
  - Metastases to breast [Unknown]
  - Peritoneal lesion [Unknown]
  - Peritoneal sarcoma [Unknown]
